FAERS Safety Report 13678379 (Version 1)
Quarter: 2017Q2

REPORT INFORMATION
  Report Type: Spontaneous
  Country: US (occurrence: US)
  Receive Date: 20170621
  Receipt Date: 20170621
  Transmission Date: 20170830
  Serious: Yes (Life-Threatening, Hospitalization)
  Sender: FDA-Public Use
  Company Number: None

PATIENT
  Age: 62 Year
  Sex: Male
  Weight: 96.75 kg

DRUGS (2)
  1. ZESTORETIC [Suspect]
     Active Substance: HYDROCHLOROTHIAZIDE\LISINOPRIL
     Indication: HYPERTENSION
     Dosage: ?          QUANTITY:90 TABLET(S);?DAILY ORAL
     Route: 048
     Dates: start: 20170615, end: 20170615
  2. CRESTOR [Concomitant]
     Active Substance: ROSUVASTATIN CALCIUM

REACTIONS (3)
  - Product substitution issue [None]
  - Hypersensitivity [None]
  - Angioedema [None]

NARRATIVE: CASE EVENT DATE: 20170615
